FAERS Safety Report 9513512 (Version 1)
Quarter: 2013Q3

REPORT INFORMATION
  Report Type: Spontaneous
  Country: US (occurrence: US)
  Receive Date: 20130910
  Receipt Date: 20130910
  Transmission Date: 20140515
  Serious: No
  Sender: FDA-Public Use
  Company Number: US-TARO-2013P1010692

PATIENT
  Age: 59 Year
  Sex: Male
  Weight: 105.5 kg

DRUGS (10)
  1. WARFARIN SODIUM TABLETS USP 5MG [Suspect]
     Route: 048
     Dates: start: 201306, end: 201306
  2. WARFARIN SODIUM TABLETS USP 5MG [Suspect]
     Indication: THROMBECTOMY
     Route: 048
     Dates: start: 201306, end: 201306
  3. WARFARIN SODIUM TABLETS USP 5MG [Suspect]
     Indication: ATRIAL FIBRILLATION
     Route: 048
     Dates: start: 201306, end: 201306
  4. WARFARIN SODIUM TABLETS USP 5MG [Suspect]
     Route: 048
     Dates: start: 201306, end: 201306
  5. WARFARIN SODIUM TABLETS USP 5MG [Suspect]
     Indication: THROMBECTOMY
     Route: 048
     Dates: start: 201306, end: 201306
  6. WARFARIN SODIUM TABLETS USP 5MG [Suspect]
     Indication: ATRIAL FIBRILLATION
     Route: 048
     Dates: start: 201306, end: 201306
  7. WARFARIN SODIUM TABLETS USP 5MG [Suspect]
     Route: 048
     Dates: start: 201306
  8. WARFARIN SODIUM TABLETS USP 5MG [Suspect]
     Indication: THROMBECTOMY
     Route: 048
     Dates: start: 201306
  9. WARFARIN SODIUM TABLETS USP 5MG [Suspect]
     Indication: ATRIAL FIBRILLATION
     Route: 048
     Dates: start: 201306
  10. METOPROLOL SUCCINATE [Concomitant]

REACTIONS (3)
  - Chills [Not Recovered/Not Resolved]
  - Hyperhidrosis [Not Recovered/Not Resolved]
  - Product substitution issue [Unknown]
